FAERS Safety Report 15893277 (Version 1)
Quarter: 2019Q1

REPORT INFORMATION
  Report Type: Report from Study
  Country: US (occurrence: US)
  Receive Date: 20190130
  Receipt Date: 20190130
  Transmission Date: 20190417
  Serious: No
  Sender: FDA-Public Use
  Company Number: US-EXELIXIS-CABO-18016219

PATIENT
  Sex: Male

DRUGS (27)
  1. GLIMEPIRIDE. [Concomitant]
     Active Substance: GLIMEPIRIDE
  2. METOPROLOL. [Concomitant]
     Active Substance: METOPROLOL
  3. AMOXICILLIN. [Concomitant]
     Active Substance: AMOXICILLIN
  4. LEVOTHYROXINE. [Concomitant]
     Active Substance: LEVOTHYROXINE
  5. NITROFURANTIN [Concomitant]
     Active Substance: NITROFURANTOIN
  6. POTASSIUM CHLORIDE. [Concomitant]
     Active Substance: POTASSIUM CHLORIDE
  7. FINASTERIDE. [Concomitant]
     Active Substance: FINASTERIDE
  8. FUROSEMIDE. [Concomitant]
     Active Substance: FUROSEMIDE
  9. PAROXETINE. [Concomitant]
     Active Substance: PAROXETINE
  10. HYDROXYCHLOROQUINE [Concomitant]
     Active Substance: HYDROXYCHLOROQUINE
  11. ELIQUIS [Concomitant]
     Active Substance: APIXABAN
  12. CLOBETASOL [Concomitant]
     Active Substance: CLOBETASOL
  13. A-HYDROCORT [Concomitant]
     Active Substance: HYDROCORTISONE SODIUM SUCCINATE
  14. MAGNESIUM OXIDE. [Concomitant]
     Active Substance: MAGNESIUM OXIDE
  15. MYRBETRIQ [Concomitant]
     Active Substance: MIRABEGRON
  16. AMLODIPINE [Concomitant]
     Active Substance: AMLODIPINE BESYLATE
  17. LEVEMIR [Concomitant]
     Active Substance: INSULIN DETEMIR
  18. DIGOXIN. [Concomitant]
     Active Substance: DIGOXIN
  19. LIDOCAINE. [Concomitant]
     Active Substance: LIDOCAINE
  20. FOLIC ACID. [Concomitant]
     Active Substance: FOLIC ACID
  21. CABOMETYX [Suspect]
     Active Substance: CABOZANTINIB S-MALATE
     Indication: RENAL CANCER
     Dosage: 40 MG, QD
     Route: 048
     Dates: start: 201809
  22. AMIODARONE [Concomitant]
     Active Substance: AMIODARONE
  23. DILTIAZEM. [Concomitant]
     Active Substance: DILTIAZEM
  24. VITAMIN D [Concomitant]
     Active Substance: CHOLECALCIFEROL
  25. OMEPRAZOLE. [Concomitant]
     Active Substance: OMEPRAZOLE
  26. PREDNISONE. [Concomitant]
     Active Substance: PREDNISONE
  27. CIPROFLOXACIN. [Concomitant]
     Active Substance: CIPROFLOXACIN

REACTIONS (7)
  - Fatigue [Unknown]
  - Pain in jaw [Recovered/Resolved]
  - Dizziness [Recovered/Resolved]
  - Diarrhoea [Unknown]
  - Nausea [Unknown]
  - Hypertension [Unknown]
  - Stomatitis [Unknown]
